FAERS Safety Report 5769409-8 (Version None)
Quarter: 2008Q2

REPORT INFORMATION
  Report Type: 
  Country: None (occurrence: None)
  Receive Date: 20080612
  Receipt Date: 20080331
  Transmission Date: 20081010
  Serious: No
  Sender: FDA-Public Use
  Company Number: US-ABBOTT-08P-163-0444788-00

PATIENT
  Sex: Female
  Weight: 81.72 kg

DRUGS (6)
  1. HUMIRA [Suspect]
     Indication: ANKYLOSING SPONDYLITIS
     Route: 058
     Dates: start: 20080229
  2. HUMIRA [Suspect]
     Indication: SACROILIITIS
  3. HUMIRA [Suspect]
     Indication: ARTHRITIS
  4. PREDNISONE TAB [Concomitant]
     Indication: SACROILIITIS
     Route: 048
  5. TYLOX [Concomitant]
     Indication: PAIN
     Route: 048
  6. FENTANYL [Concomitant]
     Indication: PAIN
     Route: 061

REACTIONS (4)
  - ARTHRALGIA [None]
  - DIZZINESS [None]
  - JOINT SWELLING [None]
  - TOOTH ABSCESS [None]
